FAERS Safety Report 24031087 (Version 1)
Quarter: 2024Q2

REPORT INFORMATION
  Report Type: Spontaneous
  Country: HR (occurrence: HR)
  Receive Date: 20240628
  Receipt Date: 20240628
  Transmission Date: 20240716
  Serious: Yes (Other)
  Sender: FDA-Public Use
  Company Number: HR-IMP-2024000411

PATIENT
  Age: 56 Year
  Sex: Female
  Weight: 66 kg

DRUGS (2)
  1. MAXITROL [Suspect]
     Active Substance: DEXAMETHASONE\NEOMYCIN SULFATE\POLYMYXIN B SULFATE
     Indication: Vision blurred
     Dosage: 4 DRP, QD
     Route: 047
     Dates: start: 20240604, end: 20240605
  2. MAXITROL [Suspect]
     Active Substance: DEXAMETHASONE\NEOMYCIN SULFATE\POLYMYXIN B SULFATE
     Indication: Vision blurred
     Dosage: 4 DOSAGE FORM, QD
     Route: 047
     Dates: start: 20240604, end: 20240605

REACTIONS (3)
  - Dry mouth [Recovering/Resolving]
  - Trismus [Recovering/Resolving]
  - Noninfective sialoadenitis [Recovering/Resolving]

NARRATIVE: CASE EVENT DATE: 20240604
